FAERS Safety Report 8109054-2 (Version None)
Quarter: 2012Q1

REPORT INFORMATION
  Report Type: 
  Country: None (occurrence: None)
  Receive Date: 20120202
  Receipt Date: 20120127
  Transmission Date: 20120608
  Serious: Yes (Other)
  Sender: FDA-Public Use
  Company Number: AU-ABBOTT-12P-008-0892703-00

PATIENT
  Sex: Female
  Weight: 80 kg

DRUGS (3)
  1. HUMIRA [Suspect]
     Indication: RHEUMATOID ARTHRITIS
     Dates: start: 20111212, end: 20111226
  2. METHOTREXATE [Concomitant]
     Indication: PRODUCT USED FOR UNKNOWN INDICATION
  3. KEFLEX [Suspect]
     Indication: PRODUCT USED FOR UNKNOWN INDICATION

REACTIONS (12)
  - ARTHRALGIA [None]
  - RASH ERYTHEMATOUS [None]
  - INJECTION SITE CELLULITIS [None]
  - PAIN IN EXTREMITY [None]
  - RASH [None]
  - LYMPH NODE PAIN [None]
  - SCIATICA [None]
  - JOINT SWELLING [None]
  - CELLULITIS [None]
  - LYMPHADENOPATHY [None]
  - HYPERSENSITIVITY [None]
  - ARTHROPATHY [None]
